FAERS Safety Report 8232382-7 (Version None)
Quarter: 2012Q1

REPORT INFORMATION
  Report Type: 
  Country: None (occurrence: None)
  Receive Date: 20120323
  Receipt Date: 20120316
  Transmission Date: 20120608
  Serious: Yes (Disabling)
  Sender: FDA-Public Use
  Company Number: FR-VIIV HEALTHCARE LIMITED-B0788806A

PATIENT
  Sex: Male

DRUGS (4)
  1. CRESTOR [Concomitant]
     Indication: DYSLIPIDAEMIA
  2. KALETRA [Suspect]
     Indication: HIV INFECTION
     Dosage: 4UNIT PER DAY
     Route: 048
     Dates: start: 20070705
  3. VIREAD [Suspect]
     Indication: HIV INFECTION
     Dosage: 1UNIT PER DAY
     Route: 048
     Dates: start: 20070705
  4. ABACAVIR SULFATE/LAMIVUDINE [Suspect]
     Indication: HIV INFECTION
     Dosage: 1UNIT PER DAY
     Route: 048
     Dates: start: 20070705

REACTIONS (1)
  - CEREBROVASCULAR ACCIDENT [None]
